FAERS Safety Report 8725423 (Version 2)
Quarter: 2012Q4

REPORT INFORMATION
  Report Type: 
  Country: US (occurrence: US)
  Receive Date: 20120815
  Receipt Date: 20120831
  Transmission Date: 20130627
  Serious: Yes (Other)
  Sender: FDA-Public Use
  Company Number: CHPA2012US017847

PATIENT
  Age: 81 Year
  Sex: Female

DRUGS (1)
  1. GAS-X EXTRA STRENGTH SOFTGELS [Suspect]
     Indication: FLATULENCE
     Dosage: 2 DF, QD PRN
     Route: 048

REACTIONS (3)
  - Arthralgia [Recovered/Resolved]
  - Product quality issue [None]
  - Product blister packaging issue [None]
